FAERS Safety Report 11090051 (Version 1)
Quarter: 2015Q2

REPORT INFORMATION
  Report Type: Spontaneous
  Country: JP (occurrence: None)
  Receive Date: 20150501
  Receipt Date: 20150501
  Transmission Date: 20150821
  Serious: Yes (Other)
  Sender: FDA-Public Use
  Company Number: 2015SEB00027

PATIENT
  Age: 46 Year
  Sex: Female
  Weight: 32 kg

DRUGS (4)
  1. METHIMAZOLE (METHIMAZOLE) [Concomitant]
  2. PROPYLTHIOURACIL( PROPYLTHIOURACIL) [Concomitant]
  3. HYDROCORTISONE. [Suspect]
     Active Substance: HYDROCORTISONE
     Indication: THYROTOXIC CRISIS
     Dosage: 100 MG, 4X/DAY, INTRAVENOUS
     Route: 042
  4. POTASSIUM IODIDE (POTASSIUM IODIDE) [Concomitant]

REACTIONS (9)
  - Critical illness myopathy [None]
  - Disseminated intravascular coagulation [None]
  - Respiratory muscle weakness [None]
  - Blood bilirubin increased [None]
  - Quadriplegia [None]
  - Haematemesis [None]
  - Ileal perforation [None]
  - Hyperglycaemia [None]
  - Liver injury [None]
